FAERS Safety Report 24302898 (Version 3)
Quarter: 2024Q4

REPORT INFORMATION
  Report Type: Spontaneous
  Country: US (occurrence: US)
  Receive Date: 20240910
  Receipt Date: 20241011
  Transmission Date: 20250114
  Serious: Yes (Hospitalization, Other)
  Sender: TORRENT
  Company Number: US-TORRENT-00013734

PATIENT
  Age: 53 Year
  Sex: Female
  Weight: 208 kg

DRUGS (1)
  1. TIOPRONIN [Suspect]
     Active Substance: TIOPRONIN
     Indication: Cystinuria
     Dosage: 3 TIMES A DAY
     Route: 048
     Dates: start: 20240607

REACTIONS (8)
  - Nephrolithiasis [Recovered/Resolved]
  - Disease complication [Unknown]
  - Product dose omission issue [Unknown]
  - Cystinuria [Recovered/Resolved]
  - Condition aggravated [Recovered/Resolved]
  - Pneumonia [Recovering/Resolving]
  - Urinary tract infection [Recovering/Resolving]
  - Acute kidney injury [Recovering/Resolving]

NARRATIVE: CASE EVENT DATE: 20240801
